FAERS Safety Report 5012435-7 (Version None)
Quarter: 2006Q2

REPORT INFORMATION
  Report Type: 
  Country: None (occurrence: None)
  Receive Date: 20060526
  Receipt Date: 20051107
  Transmission Date: 20061013
  Serious: Yes (Other)
  Sender: FDA-Public Use
  Company Number: US-BOEHRINGER INGELHEIM PHARMACEUTICALS, INC.-2005-DE-04918GD

PATIENT
  Age: 64 Year
  Sex: Male
  Weight: 114 kg

DRUGS (2)
  1. PRAMIPEXOLE [Suspect]
     Indication: PARKINSON'S DISEASE
  2. PRAMIPEXOLE [Suspect]

REACTIONS (9)
  - ABNORMAL BEHAVIOUR [None]
  - DRUG TOXICITY [None]
  - GAMBLING [None]
  - HALLUCINATION, VISUAL [None]
  - HYPERPHAGIA [None]
  - LIBIDO INCREASED [None]
  - OBSESSIVE-COMPULSIVE DISORDER [None]
  - SOMNOLENCE [None]
  - WEIGHT INCREASED [None]
